FAERS Safety Report 10236197 (Version 1)
Quarter: 2014Q1

REPORT INFORMATION
  Report Type: Spontaneous
  Country: US (occurrence: None)
  Receive Date: 20140306
  Receipt Date: 20140306
  Transmission Date: 20141002
  Serious: Yes (Other)
  Sender: FDA-Public Use
  Company Number: 163-21880-13111654

PATIENT
  Age: 66 Year
  Sex: Male
  Weight: 92.53 kg

DRUGS (6)
  1. REVLIMID (LENALIDOMIDE) (10 MILLIGRAM, CAPSULES) [Suspect]
     Indication: MANTLE CELL LYMPHOMA
     Route: 048
     Dates: start: 20130906, end: 20130911
  2. CYMBALTA [Concomitant]
  3. LYRICA (PEGABALIN) (UNKNOWN) [Concomitant]
  4. LEVOTHYROXINE (LEVOTHYROXINE) (UNKNOWN) [Concomitant]
  5. NUCYNTA (TAPENTADOL HYDROCHLORIDE) (UNKNOWN) [Concomitant]
  6. LASIX (FUROSEMIDE) (UNKNOWN) [Concomitant]

REACTIONS (4)
  - Generalised oedema [None]
  - Weight increased [None]
  - Rash [None]
  - Blister [None]
